FAERS Safety Report 11109445 (Version 1)
Quarter: 2015Q2

REPORT INFORMATION
  Report Type: Report from Study
  Country: NZ (occurrence: NZ)
  Receive Date: 20150513
  Receipt Date: 20150513
  Transmission Date: 20150821
  Serious: Yes (Other)
  Sender: FDA-Public Use
  Company Number: NZ-ABBVIE-15K-118-1388339-00

PATIENT
  Age: 43 Year
  Sex: Male

DRUGS (1)
  1. HUMIRA [Suspect]
     Active Substance: ADALIMUMAB
     Indication: ANKYLOSING SPONDYLITIS
     Route: 065
     Dates: start: 2014

REACTIONS (7)
  - Deafness [Not Recovered/Not Resolved]
  - Ankylosing spondylitis [Not Recovered/Not Resolved]
  - Tinnitus [Not Recovered/Not Resolved]
  - Barrett^s oesophagus [Not Recovered/Not Resolved]
  - Pain [Not Recovered/Not Resolved]
  - Inappropriate schedule of drug administration [Unknown]
  - Irritable bowel syndrome [Not Recovered/Not Resolved]
